FAERS Safety Report 8005934-7 (Version None)
Quarter: 2011Q4

REPORT INFORMATION
  Report Type: 
  Country: None (occurrence: None)
  Receive Date: 20111223
  Receipt Date: 20111214
  Transmission Date: 20120403
  Serious: Yes (Other)
  Sender: FDA-Public Use
  Company Number: BR-ASTRAZENECA-2011SE68337

PATIENT
  Age: 76 Year
  Sex: Female

DRUGS (2)
  1. ATACAND HCT [Suspect]
     Dosage: 16/2.5 MG
     Route: 048
  2. ATACAND HCT [Suspect]
     Route: 048

REACTIONS (3)
  - INFARCTION [None]
  - SWELLING [None]
  - BLOOD PRESSURE INADEQUATELY CONTROLLED [None]
